FAERS Safety Report 11821742 (Version 1)
Quarter: 2015Q4

REPORT INFORMATION
  Report Type: Spontaneous
  Country: US (occurrence: US)
  Receive Date: 20151210
  Receipt Date: 20151210
  Transmission Date: 20160305
  Serious: No
  Sender: FDA-Public Use
  Company Number: US-EISAI MEDICAL RESEARCH-EC-2015-012581

PATIENT
  Age: 39 Year
  Sex: Male

DRUGS (8)
  1. BELVIQ [Suspect]
     Active Substance: LORCASERIN HYDROCHLORIDE
     Indication: OBESITY
     Route: 048
  2. ESCITALOPRAM [Concomitant]
     Active Substance: ESCITALOPRAM OXALATE
     Indication: MAJOR DEPRESSION
  3. SIMVASTIN [Concomitant]
     Active Substance: SIMVASTATIN
  4. OMEPRAZOLE. [Concomitant]
     Active Substance: OMEPRAZOLE
  5. METFORMIN [Concomitant]
     Active Substance: METFORMIN HYDROCHLORIDE
  6. INSULIN [Concomitant]
     Active Substance: INSULIN NOS
     Dosage: 180 UNITS
  7. BENAZEPRIL-HYDROCHLOROTHIAZIDE [Concomitant]
     Dosage: 20-25 MG
  8. CLONAZEPAM. [Concomitant]
     Active Substance: CLONAZEPAM
     Indication: MAJOR DEPRESSION

REACTIONS (2)
  - Depression [Recovering/Resolving]
  - Suicidal ideation [Recovered/Resolved]
